FAERS Safety Report 11643198 (Version 1)
Quarter: 2015Q4

REPORT INFORMATION
  Report Type: Spontaneous
  Country: US (occurrence: US)
  Receive Date: 20151020
  Receipt Date: 20151020
  Transmission Date: 20160304
  Serious: No
  Sender: FDA-Public Use
  Company Number: US-PFIZER INC-2015345363

PATIENT
  Age: 64 Year
  Sex: Female

DRUGS (1)
  1. ZALEPLON. [Suspect]
     Active Substance: ZALEPLON
     Dosage: 5 MG CAPSUES, TAKE 1 AT BEDTIME

REACTIONS (3)
  - Drug effect increased [Unknown]
  - Hypersomnia [Unknown]
  - Feeling abnormal [Unknown]
